FAERS Safety Report 6716482-6 (Version None)
Quarter: 2010Q2

REPORT INFORMATION
  Report Type: 
  Country: None (occurrence: None)
  Receive Date: 20100507
  Receipt Date: 20100504
  Transmission Date: 20101027
  Serious: Yes (Death, Hospitalization, Other)
  Sender: FDA-Public Use
  Company Number: PHHY2010US17503

PATIENT
  Sex: Female
  Weight: 54.422 kg

DRUGS (23)
  1. RECLAST [Suspect]
     Indication: OSTEOPOROSIS
     Dosage: 5MG/100ML ONCE YEARLY
     Route: 042
     Dates: start: 20100301
  2. RITUXAN [Concomitant]
     Dosage: 1000 MG DAILY
     Route: 042
     Dates: start: 20100111
  3. NEXIUM [Concomitant]
     Dosage: 1 EACH DAY
     Dates: start: 20100309
  4. HERUPEX [Concomitant]
  5. METFORMIN [Concomitant]
  6. FORADIL [Concomitant]
     Dosage: TWICE EACH DAY
     Dates: start: 20091109
  7. ARAVA [Concomitant]
     Dosage: 20 MG, QOD
     Dates: start: 20091109
  8. PREDNISONE [Concomitant]
     Dosage: 2.5 MG, QD EACH MORNING
     Dates: start: 20090708
  9. LIDODERM [Concomitant]
     Dosage: 5 %, PRN, AA ONCE EACH DAY
     Dates: start: 20090708
  10. HYDROCHLOROTHIAZIDE [Concomitant]
     Dosage: 25 MG, QD
     Dates: start: 20090311
  11. ALBUTEROL [Concomitant]
     Dosage: 2 PUFFS EVERY 4 HOURS, PRN
     Dates: start: 20090311
  12. EXFORGE [Concomitant]
     Dosage: 5/160 2 DAILY
     Dates: start: 20080715
  13. JANUVIA [Concomitant]
     Dosage: 100 MG, QD
     Dates: start: 20071119
  14. TENEX [Concomitant]
     Dosage: ONCE EACH DAY
     Dates: start: 20060811
  15. VICODIN ES [Concomitant]
     Indication: PAIN
     Dosage: 1 DF, TID, PRN
     Dates: start: 20100309
  16. VITAMIN B COMPLEX CAP [Concomitant]
     Dosage: DAILY
     Dates: start: 20100309
  17. SOLU-MEDROL [Concomitant]
     Dosage: 100 MG, BIW
     Route: 042
     Dates: start: 20100111
  18. MIRAPEX [Concomitant]
     Dosage: 0.25 MG, BID
     Dates: start: 20091109
  19. FOLIC ACID [Concomitant]
     Dosage: 1 MG, QD
     Dates: start: 20091109
  20. PATANASE [Concomitant]
     Dosage: 2 SPRAYS TWICE EACH DAY
     Dates: start: 20090311
  21. VITAMIN C [Concomitant]
     Dosage: 1000 MG, QD
     Dates: start: 20071119
  22. ASPIRIN [Concomitant]
     Dosage: 81 MG, QD
     Dates: start: 20070723
  23. CALCIUM [Concomitant]
     Dosage: 600 MG, QD
     Dates: start: 20060811

REACTIONS (11)
  - BLOOD CREATININE INCREASED [None]
  - CREATININE RENAL CLEARANCE INCREASED [None]
  - DEEP VEIN THROMBOSIS [None]
  - GLOMERULOSCLEROSIS [None]
  - NEPHROSCLEROSIS [None]
  - OEDEMA DUE TO RENAL DISEASE [None]
  - RENAL EMBOLISM [None]
  - RENAL FAILURE [None]
  - RENAL TUBULAR NECROSIS [None]
  - RHEUMATOID ARTHRITIS [None]
  - SEPSIS [None]
